FAERS Safety Report 10256756 (Version 1)
Quarter: 2014Q2

REPORT INFORMATION
  Report Type: Report from Study
  Country: BR (occurrence: BR)
  Receive Date: 20140624
  Receipt Date: 20140624
  Transmission Date: 20141212
  Serious: Yes (Other)
  Sender: FDA-Public Use
  Company Number: BR-ABBVIE-14P-020-1249036-00

PATIENT
  Age: 62 Year
  Sex: Female
  Weight: 72 kg

DRUGS (2)
  1. HUMIRA [Suspect]
     Indication: RHEUMATOID ARTHRITIS
     Route: 058
     Dates: start: 20100729, end: 201403
  2. UNKNOWN MEDICATIONS [Concomitant]
     Indication: PRODUCT USED FOR UNKNOWN INDICATION

REACTIONS (10)
  - Ischaemia [Unknown]
  - VIIth nerve paralysis [Unknown]
  - Monoplegia [Unknown]
  - Monoplegia [Unknown]
  - Arthropathy [Unknown]
  - Stress [Unknown]
  - Malaise [Recovered/Resolved]
  - Apathy [Recovered/Resolved]
  - Burning sensation [Unknown]
  - Burning sensation [Unknown]
